FAERS Safety Report 4914214-5 (Version None)
Quarter: 2006Q1

REPORT INFORMATION
  Report Type: 
  Country: None (occurrence: None)
  Receive Date: 20060113
  Receipt Date: 20051104
  Transmission Date: 20060701
  Serious: No
  Sender: FDA-Public Use
  Company Number: 2005SP003859

PATIENT
  Age: 44 Year
  Sex: Female
  Weight: 70.3075 kg

DRUGS (6)
  1. LUNESTA [Suspect]
     Indication: INSOMNIA
     Dosage: 2 MG; HS; ORAL
     Route: 048
     Dates: start: 20050603, end: 20050601
  2. LUNESTA [Suspect]
     Indication: INSOMNIA
     Dosage: 2 MG; HS; ORAL
     Route: 048
     Dates: start: 20050601
  3. ORTHO-NOVUM 7/7/7-21 [Concomitant]
  4. ZYRTEC [Concomitant]
  5. RHINOCORT [Concomitant]
  6. TRAZODONE HCL [Concomitant]

REACTIONS (2)
  - DEPRESSION [None]
  - DYSGEUSIA [None]
